FAERS Safety Report 15159222 (Version 1)
Quarter: 2018Q3

REPORT INFORMATION
  Report Type: Spontaneous
  Country: US (occurrence: US)
  Receive Date: 20180620
  Receipt Date: 20180620
  Transmission Date: 20181010
  Serious: Yes (Other)
  Sender: FDA-Public Use
  Company Number: None

PATIENT
  Age: 60 Year
  Sex: Male
  Weight: 83.7 kg

DRUGS (1)
  1. DILTIAZEM HYDROCHLORIDE 180 MG [Suspect]
     Active Substance: DILTIAZEM HYDROCHLORIDE
     Indication: HYPERTENSION
     Dosage: ?          QUANTITY:1 DF DOSAGE FORM;?
     Route: 048
     Dates: start: 20170606, end: 20180618

REACTIONS (4)
  - Rhinorrhoea [None]
  - Eye irritation [None]
  - Fatigue [None]
  - Ataxia [None]

NARRATIVE: CASE EVENT DATE: 20180106
